FAERS Safety Report 9444871 (Version 1)
Quarter: 2013Q3

REPORT INFORMATION
  Report Type: Spontaneous
  Country: US (occurrence: None)
  Receive Date: 20130802
  Receipt Date: 20130802
  Transmission Date: 20140515
  Serious: Yes (Hospitalization, Other)
  Sender: FDA-Public Use
  Company Number: DSU-2013-04089

PATIENT
  Age: 64 Year
  Sex: Male
  Weight: 68.04 kg

DRUGS (2)
  1. BENICAR (OLMESARTAN MEDOXOMIL) (40 MILLIGRAM, TABLET) (OLMESARTAN MEDOXOMIL) [Suspect]
     Indication: HYPERTENSION
     Route: 048
     Dates: start: 2009
  2. SIMVASTATIN [Concomitant]

REACTIONS (5)
  - Road traffic accident [None]
  - Head injury [None]
  - Laceration [None]
  - Amnesia [None]
  - Concussion [None]
